FAERS Safety Report 9753778 (Version 2)
Quarter: 2015Q3

REPORT INFORMATION
  Report Type: Spontaneous
  Country: US (occurrence: US)
  Receive Date: 20131213
  Receipt Date: 20150805
  Transmission Date: 20151125
  Serious: No
  Sender: FDA-Public Use
  Company Number: US-GILEAD-2010-0027047

PATIENT
  Age: 62 Year
  Sex: Female
  Weight: 47.17 kg

DRUGS (16)
  1. HYDROCODONE/APAP [Concomitant]
     Active Substance: ACETAMINOPHEN\HYDROCODONE BITARTRATE
  2. ASPIRIN. [Concomitant]
     Active Substance: ASPIRIN
  3. URSODIOL. [Concomitant]
     Active Substance: URSODIOL
  4. PREMARIN [Concomitant]
     Active Substance: ESTROGENS, CONJUGATED
  5. MAGIC MOUTHWASH [Concomitant]
     Active Substance: DIPHENHYDRAMINE HYDROCHLORIDE\LIDOCAINE HYDROCHLORIDE\NYSTATIN
  6. NADOLOL. [Concomitant]
     Active Substance: NADOLOL
  7. ACTONEL [Concomitant]
     Active Substance: RISEDRONATE SODIUM
  8. LETAIRIS [Suspect]
     Active Substance: AMBRISENTAN
     Indication: PULMONARY ARTERIAL HYPERTENSION
     Route: 048
     Dates: start: 20080609, end: 20100111
  9. AZATHIOPRINE. [Concomitant]
     Active Substance: AZATHIOPRINE
  10. PETROLATUM/MINERAL OIL LIGHT/WOOL FAT [Concomitant]
  11. HYDROXYZINE [Concomitant]
     Active Substance: HYDROXYZINE\HYDROXYZINE HYDROCHLORIDE
  12. ENULOSE [Concomitant]
     Active Substance: LACTULOSE
  13. NEXIUM [Concomitant]
     Active Substance: ESOMEPRAZOLE MAGNESIUM
  14. FUROSEMIDE. [Concomitant]
     Active Substance: FUROSEMIDE
  15. NITROGLYCERIN. [Concomitant]
     Active Substance: NITROGLYCERIN
  16. HYPOTEARS [Concomitant]
     Active Substance: POLYETHYLENE GLYCOL 400\POLYVINYL ALCOHOL

REACTIONS (1)
  - Swelling [Not Recovered/Not Resolved]
